FAERS Safety Report 5917135-4 (Version None)
Quarter: 2008Q4

REPORT INFORMATION
  Report Type: 
  Country: None (occurrence: None)
  Receive Date: 20081014
  Receipt Date: 20081007
  Transmission Date: 20090506
  Serious: Yes (Other)
  Sender: FDA-Public Use
  Company Number: NO-AVENTIS-200815257EU

PATIENT
  Age: 63 Year
  Sex: Female
  Weight: 87 kg

DRUGS (7)
  1. ENOXAPARIN SODIUM [Suspect]
     Indication: THROMBOSIS PROPHYLAXIS
     Route: 058
     Dates: start: 20080908, end: 20080912
  2. ACETAMINOPHEN [Concomitant]
  3. DICLOFENAC [Concomitant]
  4. LISINOPRIL [Concomitant]
     Indication: HYPERTENSION
     Route: 048
  5. ALBYL [Concomitant]
     Indication: THROMBOSIS PROPHYLAXIS
     Route: 048
  6. CETIRIZINE HCL [Concomitant]
     Route: 048
  7. CETIRIZINE HCL [Concomitant]
     Route: 048

REACTIONS (1)
  - HEPATOCELLULAR INJURY [None]
